FAERS Safety Report 9312190 (Version 1)
Quarter: 2013Q1

REPORT INFORMATION
  Report Type: Spontaneous
  Country: AT (occurrence: None)
  Receive Date: 20130220
  Receipt Date: 20130220
  Transmission Date: 20140127
  Serious: Yes (Hospitalization)
  Sender: FDA-Public Use
  Company Number: 2012-037791

PATIENT
  Age: 82 Year
  Sex: Female
  Weight: 65 kg

DRUGS (5)
  1. VEGF TRAP-EYE [Suspect]
     Indication: DIABETIC RETINAL OEDEMA
     Route: 031
     Dates: start: 20120201, end: 20120328
  2. THROMBO ASS (ACETYLSALICYCLIC ACID) [Concomitant]
  3. SIMVASTATIN (SIMVASTATIN) [Concomitant]
  4. INSULIN MIXTARD (HUMAN MIXTARD [INSULIN HUMAN, INSULIN HUMAN INJECTION, ISOPHANE]) [Concomitant]
  5. NOMEXOR (NEBIVOLOL HYDROCHLORIDE) [Concomitant]

REACTIONS (2)
  - Ischaemic stroke [None]
  - Atrial fibrillation [None]
